FAERS Safety Report 7020859-1 (Version None)
Quarter: 2010Q3

REPORT INFORMATION
  Report Type: 
  Country: None (occurrence: None)
  Receive Date: 20100929
  Receipt Date: 20100920
  Transmission Date: 20110219
  Serious: Yes (Other)
  Sender: FDA-Public Use
  Company Number: GXKR2010BR10710

PATIENT
  Age: 74 Year
  Sex: Female

DRUGS (10)
  1. AMIODARONE HCL [Suspect]
     Dosage: 40 MG/DAY
  2. FLUNARIZINE [Interacting]
     Dosage: 10 MG/DAY
  3. LEVOTHYROXINE SODIUM [Concomitant]
     Dosage: 50 UG/DAY
  4. CAPTOPRIL [Concomitant]
     Dosage: 75 MG/DAY
  5. TRIMETAZIDINE [Concomitant]
     Dosage: 60 MG/DAY
  6. LEVODOPA W/BENSERAZIDE/ [Concomitant]
  7. BIPERIDEN HYDROCHLORIDE TAB [Concomitant]
     Dosage: 4 MG/DAY
  8. AMANTADINE [Concomitant]
     Dosage: 200 MG/DAY
  9. PRAMIPEXOLE [Concomitant]
     Dosage: 3 MG/DAY
  10. TOLCAPONE [Concomitant]
     Dosage: 300 MG/DAY

REACTIONS (13)
  - BRADYKINESIA [None]
  - COGNITIVE DISORDER [None]
  - DRUG INTERACTION [None]
  - DYSARTHRIA [None]
  - DYSPHAGIA [None]
  - FALL [None]
  - FREEZING PHENOMENON [None]
  - GAZE PALSY [None]
  - MOVEMENT DISORDER [None]
  - MUSCLE RIGIDITY [None]
  - PROGRESSIVE SUPRANUCLEAR PALSY [None]
  - TORTICOLLIS [None]
  - TREMOR [None]
